FAERS Safety Report 7508434-3 (Version None)
Quarter: 2011Q2

REPORT INFORMATION
  Report Type: 
  Country: None (occurrence: None)
  Receive Date: 20110527
  Receipt Date: 20110524
  Transmission Date: 20111010
  Serious: No
  Sender: FDA-Public Use
  Company Number: US-PFIZER INC-2011063296

PATIENT
  Sex: Male

DRUGS (5)
  1. DIOVAN [Concomitant]
     Dosage: UNK
  2. LIPITOR [Suspect]
     Indication: HYPERLIPIDAEMIA
     Dosage: 10 MG, 1X/DAY
     Route: 048
     Dates: start: 20101123, end: 20101217
  3. SPIRIVA [Concomitant]
     Dosage: UNK
  4. ALBUTEROL SULFATE AUTOHALER [Concomitant]
     Dosage: UNK
  5. ADVAIR DISKUS 100/50 [Concomitant]
     Dosage: UNK

REACTIONS (1)
  - DRUG ERUPTION [None]
